FAERS Safety Report 19421194 (Version 1)
Quarter: 2021Q2

REPORT INFORMATION
  Report Type: Spontaneous
  Country: US (occurrence: US)
  Receive Date: 20210615
  Receipt Date: 20210615
  Transmission Date: 20210717
  Serious: No
  Sender: FDA-Public Use
  Company Number: US-KALA PHARAMACEUTICALS-2021KLA00031

PATIENT
  Age: 71 Year
  Sex: Female
  Weight: 39 kg

DRUGS (3)
  1. INVELTYS [Suspect]
     Active Substance: LOTEPREDNOL ETABONATE
     Dosage: 2 DROP, 1X/DAY
     Route: 047
     Dates: start: 20210317, end: 202103
  2. INVELTYS [Suspect]
     Active Substance: LOTEPREDNOL ETABONATE
     Indication: CATARACT OPERATION
     Dosage: 1 DROP, 2X/DAY
     Route: 047
     Dates: start: 20210316, end: 20210316
  3. INVELTYS [Suspect]
     Active Substance: LOTEPREDNOL ETABONATE
     Dosage: 1?2 DROPS A DAY
     Route: 047
     Dates: start: 202103, end: 20210319

REACTIONS (2)
  - Off label use [Recovered/Resolved]
  - Hordeolum [Recovering/Resolving]

NARRATIVE: CASE EVENT DATE: 20210316
